FAERS Safety Report 10166469 (Version 1)
Quarter: 2014Q2

REPORT INFORMATION
  Report Type: Spontaneous
  Country: US (occurrence: None)
  Receive Date: 20140509
  Receipt Date: 20140509
  Transmission Date: 20141212
  Serious: No
  Sender: FDA-Public Use
  Company Number: None

PATIENT
  Sex: Female

DRUGS (1)
  1. NEXAVAR 200MG BAYER [Suspect]
     Indication: HEPATIC CANCER
     Dosage: 400 MG TWICE A DAY ORALLY
     Route: 048
     Dates: start: 20131128

REACTIONS (2)
  - Epistaxis [None]
  - Heart rate decreased [None]
